FAERS Safety Report 7101357-3 (Version None)
Quarter: 2010Q4

REPORT INFORMATION
  Report Type: 
  Country: None (occurrence: None)
  Receive Date: 20101108
  Receipt Date: 20101029
  Transmission Date: 20110411
  Serious: Yes (Hospitalization)
  Sender: FDA-Public Use
  Company Number: 021345

PATIENT
  Sex: Male

DRUGS (4)
  1. XYZAL [Suspect]
     Dosage: ORAL
     Route: 048
     Dates: end: 20100925
  2. RAMIPRIL [Suspect]
     Dosage: ORAL
     Route: 048
     Dates: end: 20100925
  3. GLUCOPHAGE [Suspect]
     Dosage: ORAL
     Route: 048
     Dates: end: 20100925
  4. FLUTICASONE PROPIONATE W/ SALMETEROL XINAFOATE (SERETIDE) [Suspect]
     Dosage: RESPIRATORY (INHALATION)
     Route: 055
     Dates: end: 20100925

REACTIONS (4)
  - ASTHENIA [None]
  - LUNG DISORDER [None]
  - OXYGEN SATURATION DECREASED [None]
  - RALES [None]
